FAERS Safety Report 10011489 (Version 2)
Quarter: 2014Q1

REPORT INFORMATION
  Report Type: Report from Study
  Country: JP (occurrence: JP)
  Receive Date: 20140314
  Receipt Date: 20140314
  Transmission Date: 20141002
  Serious: Yes (Other)
  Sender: FDA-Public Use
  Company Number: PHHY2013JP146207

PATIENT
  Age: 82 Year
  Sex: Male
  Weight: 55 kg

DRUGS (4)
  1. EXELON [Suspect]
     Indication: DEMENTIA ALZHEIMER^S TYPE
     Dosage: 4.5MG DAILY (1.9 MG/24HOURS)
     Route: 062
     Dates: start: 20120426, end: 20120521
  2. EXELON [Suspect]
     Dosage: 9MG DAILY (4.6 MG/24HOURS)
     Route: 062
     Dates: start: 20120521, end: 20120618
  3. EXELON [Suspect]
     Dosage: 13.5MG DAILY (6.9 MG/24HOURS)
     Route: 062
     Dates: start: 20120618, end: 20120720
  4. EXELON [Suspect]
     Dosage: 18MG DAILY (9.5MG/24HOURS)
     Route: 062
     Dates: start: 20120720, end: 20121026

REACTIONS (4)
  - Memory impairment [Unknown]
  - Application site rash [Unknown]
  - Application site erythema [Recovering/Resolving]
  - No therapeutic response [Unknown]
